FAERS Safety Report 6793344-X (Version None)
Quarter: 2010Q2

REPORT INFORMATION
  Report Type: 
  Country: None (occurrence: None)
  Receive Date: 20100624
  Receipt Date: 20100125
  Transmission Date: 20101027
  Serious: Yes (Other)
  Sender: FDA-Public Use
  Company Number: US-MYLANLABS-2009S1021481

PATIENT
  Age: 38 Year
  Sex: Male
  Weight: 109.77 kg

DRUGS (13)
  1. CLOZAPINE [Suspect]
     Indication: SCHIZOPHRENIA
     Dates: start: 20060401, end: 20091213
  2. CLOZAPINE [Suspect]
     Dates: start: 20060401, end: 20091213
  3. NORVASC [Concomitant]
  4. ZOCOR [Concomitant]
     Route: 048
  5. ASPIRIN [Concomitant]
     Route: 048
  6. LASIX [Concomitant]
  7. AVAPRO [Concomitant]
  8. DOCUSATE CALCIUM [Concomitant]
  9. TOPAMAX [Concomitant]
  10. POTASSIUM /00031402/ [Concomitant]
  11. GEODON [Concomitant]
  12. COGENTIN [Concomitant]
  13. THEOPHYLLINE-SR [Concomitant]

REACTIONS (4)
  - GRANULOCYTOPENIA [None]
  - HAEMATOCRIT DECREASED [None]
  - HAEMOGLOBIN DECREASED [None]
  - RED BLOOD CELL COUNT DECREASED [None]
